FAERS Safety Report 25234153 (Version 1)
Quarter: 2025Q2

REPORT INFORMATION
  Report Type: Spontaneous
  Country: US (occurrence: US)
  Receive Date: 20250424
  Receipt Date: 20250424
  Transmission Date: 20250717
  Serious: Yes (Hospitalization, Other)
  Sender: GRAVITI PHARMACEUTICALS PRIVATE LIMITED
  Company Number: US-GRAVITIPHARMA-GRA-2504-US-LIT-0230

PATIENT
  Age: 27 Year
  Sex: Female

DRUGS (1)
  1. BUPROPION HYDROCHLORIDE [Suspect]
     Active Substance: BUPROPION HYDROCHLORIDE
     Indication: Product used for unknown indication
     Route: 065

REACTIONS (6)
  - Hypotension [Recovering/Resolving]
  - Pulmonary oedema [Recovering/Resolving]
  - Ventricular tachycardia [Recovering/Resolving]
  - Cardiogenic shock [Recovering/Resolving]
  - Toxicity to various agents [Unknown]
  - Overdose [Unknown]
